FAERS Safety Report 8358563-X (Version None)
Quarter: 2012Q2

REPORT INFORMATION
  Report Type: 
  Country: None (occurrence: None)
  Receive Date: 20120514
  Receipt Date: 20120507
  Transmission Date: 20120825
  Serious: Yes (Other)
  Sender: FDA-Public Use
  Company Number: US-BAYER-2012-039782

PATIENT
  Age: 46 Year
  Sex: Female

DRUGS (6)
  1. HYDROCODONE BITARTRATE [Concomitant]
     Dosage: 5/500
     Dates: start: 20051207
  2. IMITREX [Concomitant]
     Dosage: 100 MG, UNK
     Dates: start: 20051204
  3. ROXICET [Concomitant]
     Dosage: 5/325 MG
     Dates: start: 20051207
  4. YASMIN [Suspect]
     Indication: OVARIAN CYST
  5. IBUPROFEN (ADVIL) [Concomitant]
     Dosage: UNK MG, UNK
  6. YASMIN [Suspect]
     Indication: MENSTRUATION IRREGULAR
     Dosage: UNK
     Dates: start: 20060104, end: 20060226

REACTIONS (6)
  - ANXIETY [None]
  - INJURY [None]
  - EMOTIONAL DISTRESS [None]
  - GENERAL PHYSICAL HEALTH DETERIORATION [None]
  - PAIN [None]
  - DEEP VEIN THROMBOSIS [None]
